FAERS Safety Report 23421162 (Version 1)
Quarter: 2024Q1

REPORT INFORMATION
  Report Type: Spontaneous
  Country: IT (occurrence: None)
  Receive Date: 20240119
  Receipt Date: 20240119
  Transmission Date: 20240409
  Serious: Yes (Hospitalization)
  Sender: FDA-Public Use
  Company Number: 2024A009509

PATIENT
  Age: 69 Year
  Sex: Female

DRUGS (12)
  1. EVUSHELD [Suspect]
     Active Substance: CILGAVIMAB\TIXAGEVIMAB
     Indication: COVID-19 prophylaxis
     Dosage: DOSAGE: 300 UNITS OF MEASURE: MILLIGRAMS FREQUENCY OF ADMINISTRATION: TOTAL ROUTE OF ADMINISTRATI...
     Route: 030
     Dates: start: 20220610, end: 20220610
  2. TACROLIMUS [Concomitant]
     Active Substance: TACROLIMUS
     Indication: Prophylaxis against transplant rejection
  3. PLAVIX [Concomitant]
     Active Substance: CLOPIDOGREL BISULFATE
     Indication: Thrombosis prophylaxis
     Dosage: DOSAGE: 75 UNITS OF MEASURE: MILLIGRAMS VIA ADMINISTRATION: ORAL
  4. ASPIRIN [Concomitant]
     Active Substance: ASPIRIN
     Indication: Thrombosis prophylaxis
     Dosage: DOSAGE: 100 UNITS OF MEASUREMENT: MILLIGRAMS VIA ADMINISTRATION: ORAL
  5. MEDROL [Concomitant]
     Active Substance: METHYLPREDNISOLONE
     Indication: Prophylaxis against transplant rejection
     Dosage: DOSAGE: 4 UNITS OF MEASUREMENT: MILLIGRAMS VIA ADMINISTRATION: ORAL
  6. LINAGLIPTIN [Concomitant]
     Active Substance: LINAGLIPTIN
     Indication: Type 2 diabetes mellitus
     Dosage: DOSAGE: 5 UNITS OF MEASUREMENT: MILLIGRAMS VIA ADMINISTRATION: ORAL
  7. FOLIC ACID SODIUM SALT [Concomitant]
     Indication: Folate deficiency
     Dosage: DOSAGE: 7.5 UNITS OF MEASUREMENT: MILLIGRAMS VIA ADMINISTRATION: ORAL
  8. MYFORTIC [Concomitant]
     Active Substance: MYCOPHENOLATE SODIUM
     Indication: Prophylaxis against transplant rejection
     Dosage: ROUTE OF ADMINISTRATION: ORAL
  9. PLAVIX [Concomitant]
     Active Substance: CLOPIDOGREL BISULFATE
     Indication: Hypercholesterolaemia
     Dosage: DOSAGE: 10 UNITS OF MEASUREMENT: MILLIGRAMS VIA ADMINISTRATION: ORAL
  10. METOPROLOL TARTRATE [Concomitant]
     Active Substance: METOPROLOL TARTRATE
     Indication: Hypertension
     Dosage: DOSAGE: 50 UNITS OF MEASUREMENT: MILLIGRAMS VIA ADMINISTRATION: ORAL
  11. PANTOPRAZOLE SODIUM [Concomitant]
     Active Substance: PANTOPRAZOLE SODIUM
     Indication: Gastrooesophageal reflux prophylaxis
     Dosage: DOSAGE: 20 UNITS OF MEASUREMENT: MILLIGRAMS VIA ADMINISTRATION: ORAL
  12. LEVETIRACETAM [Concomitant]
     Active Substance: LEVETIRACETAM
     Indication: Epilepsy

REACTIONS (2)
  - COVID-19 [Recovered/Resolved]
  - Drug ineffective [Unknown]

NARRATIVE: CASE EVENT DATE: 20221113
